FAERS Safety Report 5987603-8 (Version None)
Quarter: 2008Q4

REPORT INFORMATION
  Report Type: 
  Country: None (occurrence: None)
  Receive Date: 20081209
  Receipt Date: 20081205
  Transmission Date: 20090506
  Serious: Yes (Other)
  Sender: FDA-Public Use
  Company Number: US-KINGPHARMUSA00001-K200801379

PATIENT
  Age: 42 Year
  Sex: Male

DRUGS (7)
  1. ALTACE [Suspect]
     Dosage: UNK
  2. AMLODIPINE [Suspect]
     Dosage: UNK
  3. ATORVASTATIN [Suspect]
     Dosage: UNK
  4. BENDROFLUAZIDE [Suspect]
     Dosage: UNK
  5. GLICLAZIDE [Suspect]
     Dosage: UNK
  6. METFORMIN HCL [Suspect]
     Dosage: UNK
  7. ALBUTEROL [Suspect]
     Dosage: UNK

REACTIONS (2)
  - DIABETES MELLITUS INADEQUATE CONTROL [None]
  - OBESITY [None]
